FAERS Safety Report 16086976 (Version 1)
Quarter: 2019Q1

REPORT INFORMATION
  Report Type: Spontaneous
  Country: AU (occurrence: AU)
  Receive Date: 20190318
  Receipt Date: 20190318
  Transmission Date: 20190418
  Serious: Yes (Hospitalization, Other)
  Sender: FDA-Public Use
  Company Number: AU-B.I. PHARMACEUTICALS,INC./RIDGEFIELD-2019-BI-011229

PATIENT
  Age: 95 Year
  Sex: Female

DRUGS (1)
  1. OFEV [Suspect]
     Active Substance: NINTEDANIB
     Indication: IDIOPATHIC PULMONARY FIBROSIS
     Route: 065

REACTIONS (5)
  - Diarrhoea [Unknown]
  - Blood creatinine increased [Unknown]
  - Dehydration [Unknown]
  - Idiopathic pulmonary fibrosis [Unknown]
  - Weight decreased [Unknown]
